FAERS Safety Report 24456410 (Version 2)
Quarter: 2024Q4

REPORT INFORMATION
  Report Type: Report from Study
  Country: ZA (occurrence: ZA)
  Receive Date: 20241017
  Receipt Date: 20241018
  Transmission Date: 20250115
  Serious: No
  Sender: ROCHE
  Company Number: ZA-ROCHE-3500435

PATIENT
  Age: 63 Year
  Sex: Female

DRUGS (6)
  1. RITUXIMAB [Suspect]
     Active Substance: RITUXIMAB
     Indication: Eosinophilic granulomatosis with polyangiitis
     Dosage: REPEATED 6-MONTHLY
     Route: 041
  2. LYRICA [Concomitant]
     Active Substance: PREGABALIN
  3. CALCIUM\MENAQUINONE 6\VITAMIN D [Concomitant]
     Active Substance: CALCIUM\MENAQUINONE 6\VITAMIN D
  4. FLUTICASONE PROPIONATE\SALMETEROL XINAFOATE [Concomitant]
     Active Substance: FLUTICASONE PROPIONATE\SALMETEROL XINAFOATE
  5. FLUTICASONE PROPIONATE [Concomitant]
     Active Substance: FLUTICASONE PROPIONATE
  6. TEXA (SOUTH AFRICA) [Concomitant]

REACTIONS (8)
  - Urge incontinence [Unknown]
  - Eosinophilic granulomatosis with polyangiitis [Unknown]
  - Malaise [Unknown]
  - Neuropathy peripheral [Unknown]
  - Vasculitis [Unknown]
  - Off label use [Unknown]
  - Eosinophil count increased [Unknown]
  - Lymphocyte count decreased [Unknown]
